FAERS Safety Report 20987499 (Version 3)
Quarter: 2022Q2

REPORT INFORMATION
  Report Type: Spontaneous
  Country: US (occurrence: US)
  Receive Date: 20220621
  Receipt Date: 20220623
  Transmission Date: 20220720
  Serious: No
  Sender: FDA-Public Use
  Company Number: US-PFIZER INC-202200798576

PATIENT
  Age: 61 Year
  Sex: Male
  Weight: 111.13 kg

DRUGS (3)
  1. CIBINQO [Suspect]
     Active Substance: ABROCITINIB
     Indication: Psoriasis
     Dosage: 200 MG, 1X/DAY
     Route: 048
  2. CIBINQO [Suspect]
     Active Substance: ABROCITINIB
     Dosage: 100 MG, 1X/DAY
     Route: 048
  3. CIBINQO [Suspect]
     Active Substance: ABROCITINIB
     Dosage: CUT THE PILL IN HALF AND TOOK ONE HALF IN THE MORNING AND ONE HALF AT NIGHT
     Route: 048

REACTIONS (4)
  - Off label use [Unknown]
  - Therapeutic product ineffective for unapproved indication [Unknown]
  - Intentional product misuse [Unknown]
  - Intentional product use issue [Unknown]
